FAERS Safety Report 6848447-8 (Version None)
Quarter: 2010Q3

REPORT INFORMATION
  Report Type: 
  Country: None (occurrence: None)
  Receive Date: 20100716
  Receipt Date: 20100713
  Transmission Date: 20110219
  Serious: Yes (Hospitalization)
  Sender: FDA-Public Use
  Company Number: JP-BAYER-201029983GPV

PATIENT
  Age: 61 Year
  Sex: Female
  Weight: 63 kg

DRUGS (11)
  1. SORAFENIB [Suspect]
     Indication: METASTATIC RENAL CELL CARCINOMA
     Route: 048
     Dates: start: 20100115
  2. SORAFENIB [Suspect]
     Dosage: RESUMED AT A REDUCED DOSE, NOT SPECIFIED.
     Dates: start: 20100508
  3. DIOVAN [Concomitant]
     Indication: HYPERTENSION
     Route: 048
     Dates: start: 20100124, end: 20100426
  4. NIFEDIPINE (ADALAT-CR) [Concomitant]
     Indication: HYPERTENSION
     Route: 048
     Dates: start: 20100327, end: 20100418
  5. HYDROCORTISONE (CORTRIL) [Concomitant]
     Indication: PROPHYLAXIS
     Route: 048
  6. PREDNISOLONE [Concomitant]
     Indication: PROPHYLAXIS
     Route: 048
     Dates: start: 20100115
  7. FAMOTIDINE (GASTER-D) [Concomitant]
     Indication: GASTRITIS PROPHYLAXIS
     Route: 048
     Dates: start: 20100204
  8. HEPARINOID (HIRUDOID) [Concomitant]
     Indication: PROPHYLAXIS
     Dosage: ADEQUATE DOSE AS NEEDED
     Route: 062
     Dates: start: 20100115
  9. URSODEOXYCHOLIC ACID (URSO) [Concomitant]
     Indication: PROPHYLAXIS
     Dosage: TOTAL DAILY DOSE: 300 MG
     Route: 048
     Dates: start: 20100326
  10. MAGNESIUM OXIDE (MAGMITT) [Concomitant]
     Indication: CONSTIPATION PROPHYLAXIS
     Dosage: ADEQUATE DOSE AS NEEDED
     Route: 048
  11. STRONGER NEO MINOPHAGEN C [Concomitant]
     Route: 042

REACTIONS (5)
  - ALANINE AMINOTRANSFERASE INCREASED [None]
  - ASPARTATE AMINOTRANSFERASE INCREASED [None]
  - BLOOD ALKALINE PHOSPHATASE INCREASED [None]
  - BLOOD LACTATE DEHYDROGENASE INCREASED [None]
  - GAMMA-GLUTAMYLTRANSFERASE INCREASED [None]
